FAERS Safety Report 20942242 (Version 1)
Quarter: 2022Q2

REPORT INFORMATION
  Report Type: Report from Study
  Country: US (occurrence: US)
  Receive Date: 20220610
  Receipt Date: 20220610
  Transmission Date: 20220720
  Serious: Yes (Other)
  Sender: FDA-Public Use
  Company Number: US-BRISTOL-MYERS SQUIBB COMPANY-2022-050172

PATIENT
  Age: 62 Year
  Sex: Female
  Weight: 111.13 kg

DRUGS (5)
  1. POMALYST [Suspect]
     Active Substance: POMALIDOMIDE
     Indication: Plasma cell myeloma
     Dosage: FREQUENCY: 21 OUT 0F 28 DAYS
     Route: 048
     Dates: start: 20160111
  2. DEXAMETHASONE [Concomitant]
     Active Substance: DEXAMETHASONE
  3. ASPIRIN [Concomitant]
     Active Substance: ASPIRIN
  4. CITRUCEL [Concomitant]
     Active Substance: METHYLCELLULOSE (4000 MPA.S)
  5. LASIX [Concomitant]
     Active Substance: FUROSEMIDE

REACTIONS (1)
  - COVID-19 [Unknown]

NARRATIVE: CASE EVENT DATE: 20220401
